FAERS Safety Report 5004656-4 (Version None)
Quarter: 2006Q2

REPORT INFORMATION
  Report Type: 
  Country: None (occurrence: None)
  Receive Date: 20060517
  Receipt Date: 20050720
  Transmission Date: 20061013
  Serious: Yes (Hospitalization)
  Sender: FDA-Public Use
  Company Number: FR-NOVOPROD-245705

PATIENT
  Age: 53 Year
  Sex: Male
  Weight: 92 kg

DRUGS (8)
  1. TENORMIN [Concomitant]
     Dosage: 50 MG, QD
     Route: 048
     Dates: start: 19970101
  2. TRIATEC [Concomitant]
     Dosage: 10 MG, QD
     Route: 048
     Dates: start: 20020101
  3. CRESTOR [Concomitant]
     Dosage: 10 MG, QD
     Route: 048
     Dates: start: 20040430
  4. ASPIRIN [Concomitant]
     Dosage: 75 MG, QD
     Route: 048
     Dates: start: 19970101
  5. NEURONTIN [Concomitant]
     Dosage: 600 MG, QD
     Route: 048
     Dates: start: 20050401, end: 20050526
  6. CARTEOL [Concomitant]
  7. NOVOLOG MIX 70/30 [Suspect]
     Dosage: 48 U, QD
     Route: 058
     Dates: start: 20050525, end: 20050624
  8. METFORMIN [Suspect]
     Dosage: 2550 MG, QD
     Route: 048
     Dates: start: 20050525, end: 20050624

REACTIONS (1)
  - BRUGADA SYNDROME [None]
